FAERS Safety Report 10205362 (Version 1)
Quarter: 2014Q2

REPORT INFORMATION
  Report Type: Spontaneous
  Country: US (occurrence: US)
  Receive Date: 20140529
  Receipt Date: 20140529
  Transmission Date: 20141212
  Serious: No
  Sender: FDA-Public Use
  Company Number: US-SA-2014SA042833

PATIENT
  Age: 66 Year
  Sex: Male

DRUGS (2)
  1. LANTUS SOLOSTAR [Suspect]
     Indication: DIABETES MELLITUS
     Dosage: STRENGTH: 100 IU/ML DOSE:15 UNIT(S)
     Route: 058
     Dates: start: 20140327
  2. SOLOSTAR [Concomitant]

REACTIONS (3)
  - Injection site pain [Unknown]
  - Wrong technique in drug usage process [Unknown]
  - Therapeutic response changed [Unknown]
